FAERS Safety Report 4356122-7 (Version None)
Quarter: 2004Q2

REPORT INFORMATION
  Report Type: 
  Country: None (occurrence: None)
  Receive Date: 20040511
  Receipt Date: 20040506
  Transmission Date: 20050107
  Serious: Yes (Other)
  Sender: FDA-Public Use
  Company Number: DE-GLAXOSMITHKLINE-D0043731A

PATIENT
  Age: 39 Year
  Sex: Male
  Weight: 100 kg

DRUGS (6)
  1. AUGMENTIN '125' [Suspect]
     Indication: CANDIDA PNEUMONIA
     Dosage: 1.2G THREE TIMES PER DAY
     Route: 042
     Dates: start: 20040126, end: 20040130
  2. AVELOX [Suspect]
     Indication: CANDIDA PNEUMONIA
     Dosage: 400MG PER DAY
     Route: 048
     Dates: start: 20040130, end: 20040210
  3. ROCEPHIN [Suspect]
     Indication: CANDIDA PNEUMONIA
     Dosage: 500MG TWICE PER DAY
     Route: 042
     Dates: start: 20040130, end: 20040210
  4. LITHIUM CARBONATE [Concomitant]
     Dosage: 100MG THREE TIMES PER DAY
     Route: 048
     Dates: start: 20000101
  5. ACETAMINOPHEN [Concomitant]
     Dosage: 1000MG PER DAY
     Route: 048
     Dates: start: 20040126
  6. RISPERDAL [Concomitant]
     Dosage: 1MG PER DAY
     Route: 048
     Dates: start: 20000101

REACTIONS (2)
  - DRUG INTERACTION [None]
  - HEPATIC ENZYME INCREASED [None]
